FAERS Safety Report 7024989-X (Version None)
Quarter: 2010Q4

REPORT INFORMATION
  Report Type: 
  Country: None (occurrence: None)
  Receive Date: 20101001
  Receipt Date: 20100809
  Transmission Date: 20110411
  Serious: No
  Sender: FDA-Public Use
  Company Number: US-NOVEN-10US001359

PATIENT
  Sex: Male
  Weight: 77.098 kg

DRUGS (5)
  1. FENTANYL [Suspect]
     Indication: BACK PAIN
     Dosage: 100 UG/HR, Q48 HOURS
     Route: 062
     Dates: start: 20100801
  2. FENTANYL [Concomitant]
     Dosage: 125 UG/HR Q48 HOURS
     Route: 062
     Dates: end: 20100731
  3. FENTANYL [Concomitant]
     Dosage: 25 UG/HR Q48HOURS
     Route: 062
  4. PERCOCET [Concomitant]
     Indication: BREAKTHROUGH PAIN
     Dosage: UNK
     Route: 048
  5. GABAPENTIN [Concomitant]
     Indication: PRODUCT USED FOR UNKNOWN INDICATION
     Dosage: UNK
     Route: 048

REACTIONS (3)
  - INADEQUATE ANALGESIA [None]
  - PRODUCT QUALITY ISSUE [None]
  - WITHDRAWAL SYNDROME [None]
